FAERS Safety Report 19085250 (Version 6)
Quarter: 2021Q2

REPORT INFORMATION
  Report Type: Spontaneous
  Country: US (occurrence: US)
  Receive Date: 20210402
  Receipt Date: 20210518
  Transmission Date: 20210717
  Serious: Yes (Hospitalization, Other)
  Sender: FDA-Public Use
  Company Number: US-UNITED THERAPEUTICS-UNT-2021-005686

PATIENT
  Age: 54 Year
  Sex: Female
  Weight: 86.17 kg

DRUGS (4)
  1. REMODULIN [Suspect]
     Active Substance: TREPROSTINIL
     Dosage: 0.028 ?G/KG, CONTINUING
     Route: 041
  2. TADALAFIL. [Concomitant]
     Active Substance: TADALAFIL
     Indication: PRODUCT USED FOR UNKNOWN INDICATION
     Route: 065
  3. REMODULIN [Suspect]
     Active Substance: TREPROSTINIL
     Indication: PULMONARY ARTERIAL HYPERTENSION
     Dosage: UNK, CONTINUING
     Route: 041
     Dates: start: 20210202
  4. REMODULIN [Suspect]
     Active Substance: TREPROSTINIL
     Dosage: 0.020 ?G/KG, CONTINUING
     Route: 041

REACTIONS (11)
  - Cough [Unknown]
  - Hernia pain [Unknown]
  - Urinary retention [Not Recovered/Not Resolved]
  - Device infusion issue [Unknown]
  - Hiatus hernia [Recovered/Resolved]
  - Pain [Unknown]
  - Palpitations [Recovered/Resolved]
  - Catheter site extravasation [Recovered/Resolved]
  - Chest pain [Unknown]
  - Micturition urgency [Unknown]
  - Nervousness [Unknown]

NARRATIVE: CASE EVENT DATE: 20210506
